FAERS Safety Report 8286493-0 (Version None)
Quarter: 2012Q2

REPORT INFORMATION
  Report Type: 
  Country: None (occurrence: None)
  Receive Date: 20120416
  Receipt Date: 20120414
  Transmission Date: 20120825
  Serious: Yes (Other)
  Sender: FDA-Public Use
  Company Number: US-PFIZER INC-2012022337

PATIENT
  Sex: Female
  Weight: 72.109 kg

DRUGS (13)
  1. GEODON [Suspect]
     Indication: SCHIZOAFFECTIVE DISORDER
     Dosage: 40 MG, DAILY
     Dates: start: 20110101, end: 20110101
  2. KLONOPIN [Concomitant]
     Indication: ANXIETY
  3. ZOCOR [Concomitant]
     Indication: BLOOD CHOLESTEROL INCREASED
     Dosage: 40 MG, DAILY
  4. ALTACE [Concomitant]
     Indication: HYPERTENSION
     Dosage: 5 MG, DAILY
  5. RISPERDAL [Suspect]
     Dosage: UNK
     Dates: end: 20110101
  6. GEODON [Suspect]
     Indication: PSYCHOTIC DISORDER
     Dosage: 80 MG, DAILY
     Dates: start: 20110101
  7. RISPERDAL [Suspect]
     Indication: PSYCHOTIC DISORDER
     Dosage: 4 MG, DAILY
     Dates: start: 19920101
  8. KLONOPIN [Concomitant]
     Indication: PANIC DISORDER
     Dosage: 1 MG, 3X/DAY
  9. WELLBUTRIN [Concomitant]
     Indication: DEPRESSION
     Dosage: 75 MG, 2X/DAY
  10. RISPERDAL [Suspect]
     Dosage: 3 MG, DAILY
  11. LEXAPRO [Suspect]
     Indication: DEPRESSION
     Dosage: 20 MG, DAILY
  12. COREG [Concomitant]
     Indication: HYPERTENSION
     Dosage: 6.25 MG, DAILY
  13. RISPERDAL [Suspect]
     Dosage: 2 MG, DAILY

REACTIONS (7)
  - STRESS [None]
  - MALAISE [None]
  - AMNESIA [None]
  - CEREBROVASCULAR ACCIDENT [None]
  - NERVOUS SYSTEM DISORDER [None]
  - MENTAL DISORDER [None]
  - INSOMNIA [None]
